FAERS Safety Report 10895459 (Version 1)
Quarter: 2015Q1

REPORT INFORMATION
  Report Type: Spontaneous
  Country: US (occurrence: US)
  Receive Date: 20150306
  Receipt Date: 20150306
  Transmission Date: 20150721
  Serious: No
  Sender: FDA-Public Use
  Company Number: US-AMGEN-USASP2014054070

PATIENT
  Age: 46 Year
  Sex: Male
  Weight: 90.5 kg

DRUGS (15)
  1. HEPARIN [Concomitant]
     Active Substance: HEPARIN SODIUM
     Dosage: 10050 UNIT, UNK
     Route: 042
  2. SENSIPAR [Suspect]
     Active Substance: CINACALCET HYDROCHLORIDE
     Indication: DIALYSIS
     Dosage: 30 MG, QD
     Route: 048
     Dates: start: 20140425, end: 20140625
  3. ACETAMINOPHEN. [Concomitant]
     Active Substance: ACETAMINOPHEN
     Dosage: 325 MG, 3 TIMES/WK
     Route: 048
     Dates: start: 20110909
  4. ASPIRIN                            /00002701/ [Concomitant]
     Active Substance: ASPIRIN
     Dosage: 81 MG, QD
     Route: 048
     Dates: start: 20110110
  5. EPOGEN [Concomitant]
     Active Substance: ERYTHROPOIETIN
     Dosage: 5100 UNIT, QWK
     Route: 058
     Dates: start: 20140731
  6. FOSRENOL [Concomitant]
     Active Substance: LANTHANUM CARBONATE
     Dosage: 1000 MG, EVERY MEAL
     Route: 048
     Dates: start: 20140303
  7. VENOFER [Concomitant]
     Active Substance: IRON SUCROSE
     Dosage: 200 MG, QMO
     Route: 042
     Dates: start: 20140619
  8. PROTONIX [Concomitant]
     Active Substance: PANTOPRAZOLE SODIUM
     Dosage: 40 MG, QD
     Route: 048
     Dates: start: 20111212
  9. ALLOPURINOL. [Concomitant]
     Active Substance: ALLOPURINOL
     Dosage: 100 MG, UNK
     Route: 048
     Dates: start: 20101101
  10. LIPITOR [Concomitant]
     Active Substance: ATORVASTATIN CALCIUM
     Dosage: 40 MG, QD
     Route: 048
     Dates: start: 20101201
  11. METOPROLOL [Concomitant]
     Active Substance: METOPROLOL
     Dosage: 50 MG, UNK
     Route: 048
     Dates: start: 20120206
  12. TRICOR                             /00090101/ [Concomitant]
     Dosage: 54 MG, UNK
     Route: 048
     Dates: start: 20111024
  13. HECTOROL [Concomitant]
     Active Substance: DOXERCALCIFEROL
     Dosage: 2 MUG/ML/4MCG, 3 TIMES/WK
     Route: 042
     Dates: start: 20140728
  14. DIPHENHYDRAMINE [Concomitant]
     Active Substance: DIPHENHYDRAMINE
     Dosage: 12.5 MG/50 MG/ML, AS NECESSARY
     Route: 042
     Dates: start: 20130828
  15. LIDOCAINE/PRILOCAINE [Concomitant]
     Dosage: 2.5 CREAM/2.5%
     Dates: start: 20111005

REACTIONS (5)
  - Mydriasis [Recovered/Resolved]
  - Irritability [Recovered/Resolved]
  - Anger [Recovered/Resolved]
  - Anxiety [Recovered/Resolved]
  - Insomnia [Recovered/Resolved]

NARRATIVE: CASE EVENT DATE: 20140425
